FAERS Safety Report 6569224-1 (Version None)
Quarter: 2010Q1

REPORT INFORMATION
  Report Type: 
  Country: None (occurrence: None)
  Receive Date: 20100201
  Receipt Date: 20100201
  Transmission Date: 20100710
  Serious: No
  Sender: FDA-Public Use
  Company Number: None

PATIENT
  Age: 58 Year
  Sex: Male
  Weight: 79.3795 kg

DRUGS (2)
  1. ROLAIDS [Suspect]
     Indication: DYSPEPSIA
     Dosage: 2 TABLETS TWICE DAY PO
     Route: 048
     Dates: start: 20100122, end: 20100125
  2. ROLAIDS [Suspect]
     Indication: FLATULENCE
     Dosage: 2 TABLETS TWICE DAY PO
     Route: 048
     Dates: start: 20100122, end: 20100125

REACTIONS (3)
  - MALAISE [None]
  - PARADOXICAL DRUG REACTION [None]
  - PRODUCT CONTAMINATION [None]
